FAERS Safety Report 8999406 (Version 4)
Quarter: 2013Q2

REPORT INFORMATION
  Report Type: Spontaneous
  Country: US (occurrence: US)
  Receive Date: 20130103
  Receipt Date: 20130409
  Transmission Date: 20140414
  Serious: Yes (Hospitalization)
  Sender: FDA-Public Use
  Company Number: US-GILEAD-2012-0067160

PATIENT
  Sex: Female

DRUGS (3)
  1. LETAIRIS [Suspect]
     Indication: PULMONARY ARTERIAL HYPERTENSION
     Dosage: 10 MG, QD
     Route: 048
     Dates: start: 20100401
  2. LETAIRIS [Suspect]
     Indication: ATRIAL SEPTAL DEFECT
  3. VENTAVIS [Suspect]

REACTIONS (2)
  - Atrial septal defect [Unknown]
  - Unevaluable event [Unknown]
